FAERS Safety Report 14301829 (Version 2)
Quarter: 2018Q1

REPORT INFORMATION
  Report Type: Spontaneous
  Country: US (occurrence: US)
  Receive Date: 20171219
  Receipt Date: 20180221
  Transmission Date: 20180509
  Serious: No
  Sender: FDA-Public Use
  Company Number: US-ASTRAZENECA-2017SF27530

PATIENT
  Age: 57 Year
  Sex: Male
  Weight: 99.8 kg

DRUGS (5)
  1. SPIRIVA [Concomitant]
     Active Substance: TIOTROPIUM BROMIDE MONOHYDRATE
  2. ATROPINE. [Concomitant]
     Active Substance: ATROPINE
  3. TUDORZA PRESSAIR [Suspect]
     Active Substance: ACLIDINIUM BROMIDE
     Indication: CHRONIC OBSTRUCTIVE PULMONARY DISEASE
     Dosage: 400MCG ONE PUFF ONCE A DAY
     Route: 055
     Dates: start: 2017
  4. TUDORZA PRESSAIR [Suspect]
     Active Substance: ACLIDINIUM BROMIDE
     Indication: CHRONIC OBSTRUCTIVE PULMONARY DISEASE
     Dosage: DOUBLE DOSE
     Route: 055
     Dates: start: 20171212
  5. ATROVENT [Concomitant]
     Active Substance: IPRATROPIUM BROMIDE

REACTIONS (9)
  - Ocular hyperaemia [Unknown]
  - Intentional product use issue [Unknown]
  - Dry eye [Unknown]
  - Eye irritation [Unknown]
  - Expired product administered [Not Recovered/Not Resolved]
  - Off label use [Not Recovered/Not Resolved]
  - Device malfunction [Unknown]
  - Agitation [Unknown]
  - Intentional device misuse [Not Recovered/Not Resolved]

NARRATIVE: CASE EVENT DATE: 2007
